FAERS Safety Report 6583452-0 (Version None)
Quarter: 2010Q1

REPORT INFORMATION
  Report Type: 
  Country: None (occurrence: None)
  Receive Date: 20100216
  Receipt Date: 20100211
  Transmission Date: 20100710
  Serious: Yes (Other)
  Sender: FDA-Public Use
  Company Number: GB-TEVA-224023ISR

PATIENT

DRUGS (3)
  1. MORPHINE [Interacting]
     Indication: DRUG USE FOR UNKNOWN INDICATION
  2. PARACETAMOL [Suspect]
  3. CODEINE SULFATE [Interacting]
     Indication: DRUG USE FOR UNKNOWN INDICATION

REACTIONS (4)
  - DEAFNESS NEUROSENSORY [None]
  - MACROCYTOSIS [None]
  - MEDICATION ERROR [None]
  - TINNITUS [None]
